FAERS Safety Report 8108196 (Version 3)
Quarter: 2015Q4

REPORT INFORMATION
  Report Type: Spontaneous
  Country: US (occurrence: US)
  Receive Date: 20110826
  Receipt Date: 20151216
  Transmission Date: 20160305
  Serious: Yes (Hospitalization, Other)
  Sender: FDA-Public Use
  Company Number: US-JNJFOC-20110406914

PATIENT
  Age: 56 Year
  Sex: Female

DRUGS (5)
  1. CORTICOSTEROIDS [Suspect]
     Active Substance: CORTICOSTEROID NOS
     Indication: INFLAMMATION
     Route: 065
  2. CIPROFLOXACIN. [Suspect]
     Active Substance: CIPROFLOXACIN
     Indication: INFECTION
     Route: 048
  3. CORTICOSTEROIDS [Suspect]
     Active Substance: CORTICOSTEROID NOS
     Indication: SINUSITIS
     Route: 065
  4. LEVAQUIN [Suspect]
     Active Substance: LEVOFLOXACIN
     Indication: BACTERIAL INFECTION
     Route: 048
     Dates: start: 2003, end: 2007
  5. LEVAQUIN [Suspect]
     Active Substance: LEVOFLOXACIN
     Indication: PRODUCT USED FOR UNKNOWN INDICATION
     Route: 048

REACTIONS (8)
  - Tendon disorder [Unknown]
  - Pain in extremity [Unknown]
  - Rotator cuff syndrome [Recovering/Resolving]
  - Drug ineffective [Unknown]
  - Tendon rupture [Recovering/Resolving]
  - Tenosynovitis [Unknown]
  - Mental disorder [Unknown]
  - Bursitis [Unknown]

NARRATIVE: CASE EVENT DATE: 200804
